FAERS Safety Report 8259044-4 (Version None)
Quarter: 2012Q2

REPORT INFORMATION
  Report Type: 
  Country: None (occurrence: None)
  Receive Date: 20120404
  Receipt Date: 20120328
  Transmission Date: 20120825
  Serious: Yes (Hospitalization)
  Sender: FDA-Public Use
  Company Number: AT-B.I. PHARMACEUTICALS,INC./RIDGEFIELD-2009-AP-00388AP

PATIENT
  Sex: Male

DRUGS (4)
  1. TRUVADA [Concomitant]
     Indication: HIV INFECTION
     Dosage: 200/245
     Route: 048
     Dates: start: 20091013
  2. VIRAMUNE [Suspect]
     Indication: HIV INFECTION
     Dosage: 400 MG
     Route: 048
     Dates: start: 20091013
  3. VIRAMUNE [Suspect]
     Dosage: 400 MG
     Route: 048
     Dates: start: 20091102
  4. MARCUMAR [Suspect]
     Indication: PULMONARY EMBOLISM
     Route: 048
     Dates: start: 20090929

REACTIONS (7)
  - DIARRHOEA [None]
  - MELAENA [None]
  - PYREXIA [None]
  - VOMITING [None]
  - URINARY TRACT INFECTION [None]
  - PULMONARY EMBOLISM [None]
  - ANAEMIA [None]
